FAERS Safety Report 25821526 (Version 1)
Quarter: 2025Q3

REPORT INFORMATION
  Report Type: Spontaneous
  Country: US (occurrence: US)
  Receive Date: 20250919
  Receipt Date: 20250919
  Transmission Date: 20251021
  Serious: Yes (Other)
  Sender: COOPERSURGICAL
  Company Number: US-COOPERSURGICAL, INC.-2025CPS006787

PATIENT
  Age: 32 Year
  Sex: Female
  Weight: 115.65 kg

DRUGS (2)
  1. PARAGARD T 380A [Suspect]
     Active Substance: COPPER
     Route: 015
     Dates: start: 2012
  2. LEVOTHYROXINE SODIUM [Concomitant]
     Active Substance: LEVOTHYROXINE SODIUM
     Dates: start: 20221205

REACTIONS (14)
  - Surgery [Recovered/Resolved]
  - Uterine polyp [Unknown]
  - Cervical dysplasia [Unknown]
  - Device breakage [Recovered/Resolved]
  - Foreign body in urogenital tract [Recovered/Resolved]
  - Complication of device removal [Recovered/Resolved]
  - Endometritis [Unknown]
  - Acrochordon [Unknown]
  - Dysmenorrhoea [Unknown]
  - Heavy menstrual bleeding [Unknown]
  - Fungal infection [Unknown]
  - Device use issue [Unknown]
  - Off label use [Unknown]
  - Dyspareunia [Unknown]

NARRATIVE: CASE EVENT DATE: 20170801
